FAERS Safety Report 5138310-5 (Version None)
Quarter: 2006Q4

REPORT INFORMATION
  Report Type: 
  Country: None (occurrence: None)
  Receive Date: 20061030
  Receipt Date: 20060817
  Transmission Date: 20070319
  Serious: Yes (Other)
  Sender: FDA-Public Use
  Company Number: 2006-37545

PATIENT
  Sex: Female

DRUGS (5)
  1. ADVAIR HFA [Suspect]
     Indication: CHRONIC OBSTRUCTIVE PULMONARY DISEASE
     Route: 055
     Dates: start: 20060201
  2. ALBUTEROL [Concomitant]
  3. SINGULAIR [Concomitant]
     Route: 048
  4. ZYRTEC [Concomitant]
  5. HORMONE REPLACEMENT [Concomitant]

REACTIONS (5)
  - ASTHMA [None]
  - DRUG INEFFECTIVE [None]
  - MALAISE [None]
  - POSTNASAL DRIP [None]
  - RHINORRHOEA [None]
